FAERS Safety Report 5391258-3 (Version None)
Quarter: 2007Q3

REPORT INFORMATION
  Report Type: 
  Country: None (occurrence: None)
  Receive Date: 20070717
  Receipt Date: 20070703
  Transmission Date: 20080115
  Serious: Yes (Life-Threatening, Hospitalization, Other)
  Sender: FDA-Public Use
  Company Number: GXKR2007US05747

PATIENT
  Age: 29 Month
  Sex: Male
  Weight: 13.7 kg

DRUGS (7)
  1. PARACETAMOL+CODEINE (NGX)(ACETAMINOPHEN (PARACETAMOL), CODEINE PHOSPHA [Suspect]
     Indication: ANALGESIA
     Dosage: 1.75 MG/KG/DOSE; 2 SINGLE DOSES DURING 5 HRS; 12-24 MG/DOSE, 4/TIMES DAY; 1.75 MG/KG, ONCE/SINGLE
  2. PARACETAMOL+CODEINE (NGX)(ACETAMINOPHEN (PARACETAMOL), CODEINE PHOSPHA [Suspect]
     Indication: ANALGESIA
     Dosage: 1.75 MG/KG/DOSE; 2 SINGLE DOSES DURING 5 HRS; 12-24 MG/DOSE, 4/TIMES DAY; 1.75 MG/KG, ONCE/SINGLE
  3. FENTANYL [Concomitant]
  4. ONDANSETRON HCL [Concomitant]
  5. HYDROCORTISONE [Concomitant]
  6. MORPHINE [Concomitant]
  7. SEVOFLURANE [Concomitant]

REACTIONS (5)
  - APNOEA [None]
  - CEREBRAL INFARCTION [None]
  - METABOLIC DISORDER [None]
  - MIOSIS [None]
  - UNRESPONSIVE TO STIMULI [None]
